FAERS Safety Report 25007021 (Version 1)
Quarter: 2025Q1

REPORT INFORMATION
  Report Type: Spontaneous
  Country: US (occurrence: US)
  Receive Date: 20250225
  Receipt Date: 20250225
  Transmission Date: 20250409
  Serious: No
  Sender: Kenvue
  Company Number: US-KENVUE-20250109862

PATIENT
  Sex: Female

DRUGS (1)
  1. WOMENS ROGAINE UNSCENTED [Suspect]
     Active Substance: MINOXIDIL
     Indication: Product used for unknown indication
     Route: 061

REACTIONS (6)
  - Nail discolouration [Unknown]
  - Overdose [Unknown]
  - Product residue present [Unknown]
  - Hair texture abnormal [Unknown]
  - Product formulation issue [Unknown]
  - Poor quality product administered [Unknown]
